FAERS Safety Report 14350813 (Version 1)
Quarter: 2018Q1

REPORT INFORMATION
  Report Type: Spontaneous
  Country: NO (occurrence: NO)
  Receive Date: 20180104
  Receipt Date: 20180104
  Transmission Date: 20180509
  Serious: Yes (Life-Threatening)
  Sender: FDA-Public Use
  Company Number: NO-009507513-1712NOR012536

PATIENT
  Age: 70 Year
  Sex: Female

DRUGS (11)
  1. GLUCOPHAGE [Concomitant]
     Active Substance: METFORMIN HYDROCHLORIDE
     Route: 048
     Dates: end: 20171012
  2. DULCOLAX NOS [Concomitant]
     Active Substance: BISACODYL OR DOCUSATE SODIUM
     Route: 048
  3. COZAAR COMP 100 MG/12,5 MG [Suspect]
     Active Substance: HYDROCHLOROTHIAZIDE\LOSARTAN POTASSIUM
     Indication: ESSENTIAL HYPERTENSION
     Dosage: TABLET STRENGTH 100/25 MG
     Route: 048
     Dates: start: 1985, end: 20171012
  4. PASSION FLOWER [Interacting]
     Active Substance: HERBALS\HOMEOPATHICS\PASSIFLORA INCARNATA FLOWER
     Indication: ANXIETY
  5. PARACET [Concomitant]
     Active Substance: ACETAMINOPHEN
     Dosage: 500 MG UP TO 3 TIMES DAILY ; AS NECESSARY
     Route: 048
  6. IMOVANE [Concomitant]
     Active Substance: ZOPICLONE
     Dosage: 3,75 MG (1/2 TABLET OF 7,5 MG) AS REQUIRED ; AS NECESSARY
     Route: 048
  7. ALBYL-E [Concomitant]
     Active Substance: ASPIRIN\MAGNESIUM OXIDE
     Route: 048
  8. SIMVASTATIN. [Concomitant]
     Active Substance: SIMVASTATIN
     Route: 048
  9. PASSION FLOWER [Interacting]
     Active Substance: HERBALS\HOMEOPATHICS\PASSIFLORA INCARNATA FLOWER
     Indication: SLEEP DISORDER
     Dosage: THE PATIENT HAS TAKEN VAIRABLE DOSES OF SEDIX, BUT LARGER DOSES IN THE WEEK BEFORE HOSPITALISATION
     Route: 048
     Dates: start: 201707, end: 20171012
  10. SPIRIVA [Concomitant]
     Active Substance: TIOTROPIUM BROMIDE MONOHYDRATE
     Route: 055
  11. SOBRIL [Concomitant]
     Active Substance: OXAZEPAM
     Dosage: AS NECESSARY
     Route: 048

REACTIONS (4)
  - Hypoosmolar state [Recovered/Resolved]
  - Drug interaction [Recovered/Resolved]
  - Hyponatraemia [Recovered/Resolved]
  - Herbal toxicity [Recovered/Resolved]

NARRATIVE: CASE EVENT DATE: 20171012
